FAERS Safety Report 10288815 (Version 4)
Quarter: 2014Q3

REPORT INFORMATION
  Report Type: Spontaneous
  Country: JP (occurrence: JP)
  Receive Date: 20140709
  Receipt Date: 20140919
  Transmission Date: 20150326
  Serious: Yes (Life-Threatening, Hospitalization, Disabling, Other)
  Sender: FDA-Public Use
  Company Number: JP-009507513-1405JPN009628

PATIENT
  Age: 38 Year
  Sex: Female
  Weight: 55 kg

DRUGS (3)
  1. MARVELON [Suspect]
     Active Substance: DESOGESTREL\ETHINYL ESTRADIOL
     Indication: MENSTRUAL CYCLE MANAGEMENT
     Dosage: 1 TABLET ONCE A DAY
     Route: 048
     Dates: start: 20131018, end: 20131104
  2. MARVELON [Suspect]
     Active Substance: DESOGESTREL\ETHINYL ESTRADIOL
     Indication: INFERTILITY
     Dosage: DAILY DOSE UNKNOWN
     Route: 048
  3. MARVELON [Suspect]
     Active Substance: DESOGESTREL\ETHINYL ESTRADIOL
     Dosage: DAILY DOSE UNKNOWN
     Route: 048

REACTIONS (9)
  - Prothrombin level decreased [Unknown]
  - Fibrin D dimer increased [Unknown]
  - Drug administration error [Unknown]
  - Cerebral infarction [Recovered/Resolved]
  - Vascular graft [Unknown]
  - Activated partial thromboplastin time shortened [Unknown]
  - Carotid artery occlusion [Recovered/Resolved]
  - Arteriosclerosis [Unknown]
  - International normalised ratio increased [Unknown]

NARRATIVE: CASE EVENT DATE: 20131018
